FAERS Safety Report 12281605 (Version 2)
Quarter: 2016Q3

REPORT INFORMATION
  Report Type: Spontaneous
  Country: US (occurrence: US)
  Receive Date: 20160419
  Receipt Date: 20160826
  Transmission Date: 20161109
  Serious: Yes (Other)
  Sender: FDA-Public Use
  Company Number: US-TEVA-641325USA

PATIENT
  Age: 43 Year
  Sex: Female

DRUGS (7)
  1. MULTI-VITAMIN [Concomitant]
     Active Substance: .ALPHA.-TOCOPHEROL ACETATE, DL-\ASCORBIC ACID\CYANOCOBALAMIN\FLUORIDE ION\FOLIC ACID\NIACIN\PYRIDOXINE\RIBOFLAVIN\THIAMINE\VITAMIN A\VITAMIN D
  2. NASONEX [Concomitant]
     Active Substance: MOMETASONE FUROATE
     Indication: HYPERSENSITIVITY
  3. VITAMIN B [Concomitant]
     Active Substance: VITAMIN B
  4. SYMBICORT [Concomitant]
     Active Substance: BUDESONIDE\FORMOTEROL FUMARATE DIHYDRATE
  5. ZECUITY [Suspect]
     Active Substance: SUMATRIPTAN SUCCINATE
     Indication: HEADACHE
     Dosage: 6.5 MG / 4 HOURS
     Route: 062
     Dates: start: 20160301, end: 20160301
  6. MAGNESIUM [Concomitant]
     Active Substance: MAGNESIUM
  7. GINGER ROOT [Concomitant]
     Active Substance: GINGER

REACTIONS (16)
  - Drug ineffective [None]
  - Application site warmth [Unknown]
  - Application site discolouration [Recovered/Resolved]
  - Product physical issue [Unknown]
  - Device malfunction [None]
  - Application site paraesthesia [Recovered/Resolved]
  - Application site inflammation [Recovered/Resolved]
  - Application site burn [Recovered/Resolved]
  - Application site erythema [Recovered/Resolved]
  - Device battery issue [Unknown]
  - Product leakage [Unknown]
  - Product packaging issue [Recovered/Resolved]
  - Product adhesion issue [Unknown]
  - Device leakage [None]
  - Product odour abnormal [Recovered/Resolved]
  - Product quality issue [None]

NARRATIVE: CASE EVENT DATE: 20160301
